FAERS Safety Report 11105536 (Version 1)
Quarter: 2015Q2

REPORT INFORMATION
  Report Type: Spontaneous
  Country: CA (occurrence: CA)
  Receive Date: 20150512
  Receipt Date: 20150512
  Transmission Date: 20150821
  Serious: Yes (Other)
  Sender: FDA-Public Use
  Company Number: CA-AMGEN-KDL380859

PATIENT
  Age: 50 Year
  Sex: Female
  Weight: 73.16 kg

DRUGS (2)
  1. ENBREL [Suspect]
     Active Substance: ETANERCEPT
     Indication: RHEUMATOID ARTHRITIS
     Dosage: UNK UNK, QWK
     Route: 065
     Dates: start: 20091005, end: 201003
  2. CELEBREX [Concomitant]
     Active Substance: CELECOXIB
     Dosage: UNK

REACTIONS (9)
  - Cystitis noninfective [Unknown]
  - Injection site reaction [Not Recovered/Not Resolved]
  - Muscular weakness [Unknown]
  - Meniscus injury [Unknown]
  - Contusion [Unknown]
  - Injection site erythema [Not Recovered/Not Resolved]
  - Impaired work ability [Unknown]
  - Injection site pruritus [Not Recovered/Not Resolved]
  - Hip arthroplasty [Unknown]

NARRATIVE: CASE EVENT DATE: 20091203
